FAERS Safety Report 21147611 (Version 2)
Quarter: 2022Q3

REPORT INFORMATION
  Report Type: Spontaneous
  Country: JP (occurrence: JP)
  Receive Date: 20220729
  Receipt Date: 20220831
  Transmission Date: 20221026
  Serious: Yes (Other)
  Sender: FDA-Public Use
  Company Number: JP-ELI_LILLY_AND_COMPANY-JP202207004181AA

PATIENT
  Age: 46 Year
  Sex: Female
  Weight: 39 kg

DRUGS (6)
  1. REYVOW [Suspect]
     Active Substance: LASMIDITAN
     Indication: Migraine
     Dosage: 50 MG
     Route: 048
     Dates: start: 20220704, end: 20220704
  2. MAGNESIUM OXIDE [Concomitant]
     Active Substance: MAGNESIUM OXIDE
  3. BEPOTASTINE BESYLATE [Concomitant]
     Active Substance: BEPOTASTINE BESYLATE
  4. MIROGABALIN BESYLATE [Concomitant]
     Active Substance: MIROGABALIN BESYLATE
     Indication: Neuralgia
     Dosage: 15 MG, DAILY
     Route: 048
     Dates: start: 20220703, end: 20220703
  5. AMITRIPTYLINE HYDROCHLORIDE [Concomitant]
     Active Substance: AMITRIPTYLINE HYDROCHLORIDE
     Indication: Neuralgia
     Dosage: 10 MG, DAILY
     Route: 048
     Dates: start: 20220703, end: 20220703
  6. LOXONIN-60 [Concomitant]
     Indication: Migraine
     Dosage: 60 MG, BID
     Route: 048
     Dates: start: 20220703, end: 20220703

REACTIONS (4)
  - Muscular weakness [Recovered/Resolved]
  - Feeling cold [Recovered/Resolved]
  - Serotonin syndrome [Recovered/Resolved]
  - Neuralgia [Unknown]

NARRATIVE: CASE EVENT DATE: 20220704
